FAERS Safety Report 11865697 (Version 1)
Quarter: 2015Q4

REPORT INFORMATION
  Report Type: Spontaneous
  Country: US (occurrence: US)
  Receive Date: 20151223
  Receipt Date: 20151223
  Transmission Date: 20160305
  Serious: Yes (Hospitalization, Other)
  Sender: FDA-Public Use
  Company Number: US-GLAXOSMITHKLINE-US2015180894

PATIENT
  Sex: Female

DRUGS (18)
  1. BENZONATATE. [Concomitant]
     Active Substance: BENZONATATE
  2. SERTRALINE [Concomitant]
     Active Substance: SERTRALINE HYDROCHLORIDE
  3. GUAIFENEX [Concomitant]
     Active Substance: GUAIFENESIN\PHENYLEPHRINE\PHENYLPROPANOLAMINE
     Indication: COUGH
  4. LIDOCAINE. [Concomitant]
     Active Substance: LIDOCAINE
  5. LORAZEPAM. [Concomitant]
     Active Substance: LORAZEPAM
  6. ONDANSETRON [Concomitant]
     Active Substance: ONDANSETRON
  7. PRADAXA [Concomitant]
     Active Substance: DABIGATRAN ETEXILATE MESYLATE
  8. ALBUTEROL. [Concomitant]
     Active Substance: ALBUTEROL
  9. ADVAIR DISKUS [Suspect]
     Active Substance: FLUTICASONE PROPIONATE\SALMETEROL XINAFOATE
     Indication: WHEEZING
     Dosage: 1 PUFF(S), 1D
     Dates: start: 2015
  10. AMIODARONE [Concomitant]
     Active Substance: AMIODARONE
  11. FOLIC ACID. [Concomitant]
     Active Substance: FOLIC ACID
  12. FOSAMAX [Concomitant]
     Active Substance: ALENDRONATE SODIUM
  13. INCRUSE ELLIPTA [Suspect]
     Active Substance: UMECLIDINIUM BROMIDE
     Indication: CHRONIC OBSTRUCTIVE PULMONARY DISEASE
     Dosage: 1 PUFF(S), 1D
     Dates: start: 2015
  14. CODEINE WITH GUAIFENESIN [Concomitant]
  15. PREDNISOLONE. [Concomitant]
     Active Substance: PREDNISOLONE
  16. CARTIA (USA) [Concomitant]
  17. FLUTICASONE [Concomitant]
     Active Substance: FLUTICASONE\FLUTICASONE PROPIONATE
  18. MAPAP [Concomitant]
     Active Substance: ACETAMINOPHEN

REACTIONS (4)
  - Respiratory tract congestion [Recovered/Resolved]
  - Cough [Unknown]
  - Wheezing [Not Recovered/Not Resolved]
  - Pneumonia [Not Recovered/Not Resolved]

NARRATIVE: CASE EVENT DATE: 2015
